FAERS Safety Report 9338872 (Version 1)
Quarter: 2013Q2

REPORT INFORMATION
  Report Type: Spontaneous
  Country: US (occurrence: US)
  Receive Date: 20130610
  Receipt Date: 20130610
  Transmission Date: 20140414
  Serious: No
  Sender: FDA-Public Use
  Company Number: US-TEVA-409608USA

PATIENT
  Sex: Male

DRUGS (1)
  1. COPAXONE [Suspect]
     Indication: MULTIPLE SCLEROSIS
     Dates: start: 20130502

REACTIONS (8)
  - Injection site pain [Unknown]
  - Injection site pruritus [Unknown]
  - Erythema [Unknown]
  - Eczema [Unknown]
  - Constipation [Unknown]
  - Chest pain [Unknown]
  - Dyspnoea [Unknown]
  - Injection site erythema [Unknown]
